FAERS Safety Report 4577369-0 (Version None)
Quarter: 2005Q1

REPORT INFORMATION
  Report Type: 
  Country: None (occurrence: None)
  Receive Date: 20050210
  Receipt Date: 20050128
  Transmission Date: 20050727
  Serious: Yes (Other)
  Sender: FDA-Public Use
  Company Number: FR-GLAXOSMITHKLINE-B0369851A

PATIENT
  Age: 19 Year
  Sex: Male

DRUGS (2)
  1. DEROXAT [Suspect]
     Indication: DEPRESSION
     Route: 048
     Dates: start: 20041201, end: 20050126
  2. BROMAZEPAM [Concomitant]
     Indication: DEPRESSION
     Dosage: 1UNIT PER DAY
     Route: 048
     Dates: start: 20041201

REACTIONS (5)
  - ABDOMINAL PAIN [None]
  - CRYING [None]
  - EXTRAPYRAMIDAL DISORDER [None]
  - MUSCLE CONTRACTURE [None]
  - TREMOR [None]
